FAERS Safety Report 8904231 (Version 1)
Quarter: 2012Q4

REPORT INFORMATION
  Report Type: Report from Study
  Country: JP (occurrence: JP)
  Receive Date: 20121112
  Receipt Date: 20121112
  Transmission Date: 20130627
  Serious: Yes (Hospitalization)
  Sender: FDA-Public Use
  Company Number: JP-009507513-2012SP031041

PATIENT
  Age: 65 Year
  Sex: Female
  Weight: 54 kg

DRUGS (8)
  1. PEGINTERFERON ALFA-2B [Suspect]
     Indication: HEPATITIS C
     Dosage: 80 microgram, QW
     Route: 058
     Dates: start: 20120229, end: 20120424
  2. PEGINTERFERON ALFA-2B [Suspect]
     Dosage: 50 microgram, QW
     Route: 058
     Dates: start: 20120502
  3. REBETOL [Suspect]
     Indication: HEPATITIS C
     Dosage: 400 mg, QD
     Route: 048
     Dates: start: 20120229, end: 20120424
  4. REBETOL [Suspect]
     Dosage: 200 mg, QD
     Route: 048
     Dates: start: 20120502, end: 20120508
  5. REBETOL [Suspect]
     Dosage: 100 mg, QD
     Route: 048
     Dates: start: 20120509, end: 20120522
  6. REBETOL [Suspect]
     Dosage: 200 mg, QD
     Route: 048
     Dates: start: 20120523
  7. TELAVIC [Suspect]
     Indication: HEPATITIS C
     Dosage: 2250 mg, QD
     Route: 048
     Dates: start: 20120229, end: 20120306
  8. TELAVIC [Suspect]
     Dosage: 1500 mg, QD
     Route: 048
     Dates: start: 20120307, end: 20120425

REACTIONS (1)
  - Decreased appetite [Recovering/Resolving]
